FAERS Safety Report 21673693 (Version 2)
Quarter: 2022Q4

REPORT INFORMATION
  Report Type: Spontaneous
  Country: US (occurrence: US)
  Receive Date: 20221202
  Receipt Date: 20221215
  Transmission Date: 20230113
  Serious: No
  Sender: FDA-Public Use
  Company Number: US-GBT-017984

PATIENT
  Age: 40 Year
  Sex: Female

DRUGS (1)
  1. OXBRYTA [Suspect]
     Active Substance: VOXELOTOR
     Indication: Haemoglobin C disease
     Route: 048
     Dates: start: 20211118

REACTIONS (3)
  - Sickle cell anaemia with crisis [Not Recovered/Not Resolved]
  - Ear infection [Recovering/Resolving]
  - Tinnitus [Recovering/Resolving]

NARRATIVE: CASE EVENT DATE: 20221026
